FAERS Safety Report 24532739 (Version 1)
Quarter: 2024Q4

REPORT INFORMATION
  Report Type: Report from Study
  Country: US (occurrence: US)
  Receive Date: 20241022
  Receipt Date: 20241022
  Transmission Date: 20250114
  Serious: Yes (Other)
  Sender: TAKEDA
  Company Number: US-TAKEDA-2024TUS060204

PATIENT
  Sex: Female

DRUGS (1)
  1. MARIBAVIR [Suspect]
     Active Substance: MARIBAVIR
     Indication: Cytomegalovirus infection
     Dosage: 400 MILLIGRAM, BID
     Route: 048
     Dates: start: 20240516, end: 20241002

REACTIONS (7)
  - Cytomegalovirus infection reactivation [Unknown]
  - White blood cell count increased [Unknown]
  - Therapeutic product effect variable [Unknown]
  - Cytomegalovirus infection [Unknown]
  - White blood cell count decreased [Unknown]
  - Drug ineffective [Unknown]
  - Dysgeusia [Unknown]
